FAERS Safety Report 22082816 (Version 1)
Quarter: 2023Q1

REPORT INFORMATION
  Report Type: Spontaneous
  Country: DZ (occurrence: DZ)
  Receive Date: 20230310
  Receipt Date: 20230310
  Transmission Date: 20230418
  Serious: Yes (Death, Other)
  Sender: FDA-Public Use
  Company Number: DZ-AMGEN-DZASP2023040022

PATIENT

DRUGS (6)
  1. FILGRASTIM [Suspect]
     Active Substance: FILGRASTIM
     Indication: Myelodysplastic syndrome
     Dosage: UNK
     Route: 065
  2. FILGRASTIM [Suspect]
     Active Substance: FILGRASTIM
     Indication: Off label use
  3. NPLATE [Suspect]
     Active Substance: ROMIPLOSTIM
     Indication: Myelodysplastic syndrome
     Dosage: UNK
     Route: 065
  4. NPLATE [Suspect]
     Active Substance: ROMIPLOSTIM
     Indication: Off label use
  5. EPOGEN [Suspect]
     Active Substance: ERYTHROPOIETIN
     Indication: Myelodysplastic syndrome
     Dosage: UNK
     Route: 065
  6. EPOGEN [Suspect]
     Active Substance: ERYTHROPOIETIN
     Indication: Off label use

REACTIONS (3)
  - Death [Fatal]
  - Acute leukaemia [Unknown]
  - Off label use [Unknown]
